FAERS Safety Report 9229863 (Version 1)
Quarter: 2013Q2

REPORT INFORMATION
  Report Type: Spontaneous
  Country: US (occurrence: None)
  Receive Date: 20130412
  Receipt Date: 20130412
  Transmission Date: 20140414
  Serious: Yes (Other)
  Sender: FDA-Public Use
  Company Number: None

PATIENT
  Age: 30 Year
  Sex: Female

DRUGS (2)
  1. ZYPREXA [Suspect]
     Indication: BIPOLAR DISORDER
     Dosage: DAILY USE OF MEDS.WITH .... PROBLEM PRIOR TO GENERIC TO BE SEEN AT F/U
     Route: 048
  2. ZOLOFT [Suspect]

REACTIONS (4)
  - Throat tightness [None]
  - Sensation of foreign body [None]
  - Dyspnoea [None]
  - Unevaluable event [None]
